FAERS Safety Report 19718532 (Version 4)
Quarter: 2021Q4

REPORT INFORMATION
  Report Type: Report from Study
  Country: DO (occurrence: DO)
  Receive Date: 20210819
  Receipt Date: 20211004
  Transmission Date: 20220303
  Serious: Yes (Death, Hospitalization, Other)
  Sender: FDA-Public Use
  Company Number: NVSC2021DO061692

PATIENT
  Age: 49 Year
  Sex: Female

DRUGS (3)
  1. KISQALI [Suspect]
     Active Substance: RIBOCICLIB
     Indication: Product used for unknown indication
     Dosage: 600 MG, QD (3 TABLETS)
     Route: 048
     Dates: start: 20200601
  2. KISQALI [Suspect]
     Active Substance: RIBOCICLIB
     Dosage: 400 MG, QD
     Route: 048
  3. KISQALI [Suspect]
     Active Substance: RIBOCICLIB
     Dosage: 600 MG, QD
     Route: 048
     Dates: start: 20200703, end: 20210308

REACTIONS (12)
  - Death [Fatal]
  - General physical health deterioration [Unknown]
  - Nodule [Unknown]
  - Metastasis [Unknown]
  - Swelling [Unknown]
  - Renal disorder [Unknown]
  - Abdominal discomfort [Not Recovered/Not Resolved]
  - Cystitis [Unknown]
  - Abdominal pain upper [Unknown]
  - Fatigue [Unknown]
  - Vomiting [Unknown]
  - Dyspepsia [Unknown]

NARRATIVE: CASE EVENT DATE: 20200701
